FAERS Safety Report 8810941 (Version 3)
Quarter: 2012Q4

REPORT INFORMATION
  Report Type: 
  Country: DE (occurrence: DE)
  Receive Date: 20120927
  Receipt Date: 20121218
  Transmission Date: 20130627
  Serious: Yes (Disabling, Other)
  Sender: FDA-Public Use
  Company Number: DE-JNJFOC-20120911491

PATIENT
  Sex: Male
  Weight: 77 kg

DRUGS (5)
  1. XARELTO [Suspect]
     Indication: EMBOLISM VENOUS
     Route: 048
  2. XARELTO [Suspect]
     Indication: THROMBOSIS PROPHYLAXIS
     Route: 048
  3. BELOC-ZOK [Concomitant]
     Route: 065
  4. ALFUZOSIN [Concomitant]
     Route: 065
  5. AMIODARON [Concomitant]
     Route: 065

REACTIONS (3)
  - Corneal oedema [Not Recovered/Not Resolved]
  - Visual impairment [Unknown]
  - Petechiae [Not Recovered/Not Resolved]
